FAERS Safety Report 7585796-2 (Version None)
Quarter: 2011Q2

REPORT INFORMATION
  Report Type: 
  Country: None (occurrence: None)
  Receive Date: 20110629
  Receipt Date: 20110629
  Transmission Date: 20111010
  Serious: Yes (Hospitalization)
  Sender: FDA-Public Use
  Company Number: None

PATIENT
  Sex: Male
  Weight: 65.7716 kg

DRUGS (15)
  1. VANCOMYCIN [Suspect]
     Indication: STAPHYLOCOCCAL BACTERAEMIA
     Dosage: 1G IV EVERY 12 HOURS
     Route: 042
     Dates: start: 20110615, end: 20110618
  2. TEMAZEPAM [Concomitant]
  3. SODIUM CHLORIDE INJ [Concomitant]
  4. HEPARIN [Concomitant]
  5. ALPHA LIPOIC ACID [Concomitant]
  6. SPIRONOLACTONE [Concomitant]
  7. SELENIUM [Concomitant]
  8. PANCREASE [Concomitant]
  9. ONDANSETRON [Concomitant]
  10. FURISEMIDE [Concomitant]
  11. TAGAMET [Concomitant]
  12. CURCUMIN [Concomitant]
  13. LACTULOSE [Concomitant]
  14. PROTONIX [Concomitant]
  15. VITAMIN D [Concomitant]

REACTIONS (2)
  - BACK PAIN [None]
  - PRURITUS [None]
